FAERS Safety Report 9310446 (Version 1)
Quarter: 2013Q2

REPORT INFORMATION
  Report Type: Spontaneous
  Country: US (occurrence: US)
  Receive Date: 20130527
  Receipt Date: 20130527
  Transmission Date: 20140414
  Serious: No
  Sender: FDA-Public Use
  Company Number: US-PFIZER INC-2013161105

PATIENT
  Age: 75 Year
  Sex: Male
  Weight: 86.17 kg

DRUGS (10)
  1. GABAPENTIN [Suspect]
     Indication: PAIN
     Dosage: 300 MG, 3X/DAY
     Dates: start: 201305
  2. GABAPENTIN [Suspect]
     Indication: DIABETIC NEUROPATHY
  3. LANTUS [Concomitant]
     Indication: DIABETES MELLITUS
     Dosage: 20 IU, 2X/DAY
  4. NOVOLOG [Concomitant]
     Indication: DIABETES MELLITUS
     Dosage: 15 UNITS IN MORNING, 6 UNITS IN LUNCH AND 10 UNITS IN DINNER, 3X/DAY
  5. SIMVASTATIN [Concomitant]
     Indication: BLOOD CHOLESTEROL INCREASED
     Dosage: 20 MG, 1X/DAY
  6. RANEXA [Concomitant]
     Indication: ANGINA PECTORIS
     Dosage: 500 MG, 2X/DAY
  7. RAMIPRIL [Concomitant]
     Indication: CARDIAC DISORDER
     Dosage: 10 MG, 1X/DAY
  8. BABY ASPIRIN [Concomitant]
     Indication: CARDIAC DISORDER
     Dosage: 81 MG, 1X/DAY
  9. CLOPIDOGREL [Concomitant]
     Indication: CARDIAC DISORDER
     Dosage: 75 MG, 1X/DAY
  10. METOPROLOL [Concomitant]
     Indication: HYPERTENSION
     Dosage: 50 MG, 1X/DAY

REACTIONS (2)
  - Drug ineffective [Unknown]
  - Discomfort [Not Recovered/Not Resolved]
